FAERS Safety Report 10434003 (Version 4)
Quarter: 2014Q4

REPORT INFORMATION
  Report Type: Spontaneous
  Country: JP (occurrence: JP)
  Receive Date: 20140905
  Receipt Date: 20141219
  Transmission Date: 20150528
  Serious: Yes (Life-Threatening, Hospitalization, Other)
  Sender: FDA-Public Use
  Company Number: JP-ELI_LILLY_AND_COMPANY-JP201408008849

PATIENT
  Age: 83 Year
  Sex: Female
  Weight: 42 kg

DRUGS (3)
  1. BAYASPIRIN [Suspect]
     Active Substance: ASPIRIN
     Indication: PRODUCT USED FOR UNKNOWN INDICATION
     Dosage: 100 MG, QD
     Route: 048
     Dates: start: 20140622, end: 20140725
  2. HEPARIN [Suspect]
     Active Substance: HEPARIN SODIUM
     Indication: PRODUCT USED FOR UNKNOWN INDICATION
     Dosage: 10000 IU, QD
     Route: 042
  3. PRASUGREL HYDROCHLORIDE [Suspect]
     Active Substance: PRASUGREL HYDROCHLORIDE
     Indication: STENT PLACEMENT
     Dosage: 3.75 MG, QD
     Route: 048
     Dates: start: 20140622, end: 20140725

REACTIONS (7)
  - Retroperitoneal haematoma [Recovering/Resolving]
  - Cerebral infarction [Recovered/Resolved with Sequelae]
  - Shock [Recovering/Resolving]
  - Disseminated intravascular coagulation [Recovering/Resolving]
  - Anaemia [Recovering/Resolving]
  - Epistaxis [Unknown]
  - Coronary artery perforation [Unknown]

NARRATIVE: CASE EVENT DATE: 20140715
